FAERS Safety Report 17481305 (Version 1)
Quarter: 2020Q1

REPORT INFORMATION
  Report Type: Spontaneous
  Country: US (occurrence: US)
  Receive Date: 20200302
  Receipt Date: 20200302
  Transmission Date: 20200409
  Serious: No
  Sender: FDA-Public Use
  Company Number: NVSC2020US057596

PATIENT
  Age: 61 Year
  Sex: Male

DRUGS (1)
  1. BUPROPION. [Suspect]
     Active Substance: BUPROPION
     Indication: AFFECTIVE DISORDER
     Dosage: 100 MG, BID
     Route: 065

REACTIONS (2)
  - Enuresis [Unknown]
  - Product use in unapproved indication [Unknown]
